FAERS Safety Report 10004836 (Version 1)
Quarter: 2014Q1

REPORT INFORMATION
  Report Type: Spontaneous
  Country: US (occurrence: US)
  Receive Date: 20140312
  Receipt Date: 20140312
  Transmission Date: 20141002
  Serious: No
  Sender: FDA-Public Use
  Company Number: US-PFIZER INC-2014072694

PATIENT
  Age: 32 Year
  Sex: Female
  Weight: 67.12 kg

DRUGS (2)
  1. LYRICA [Suspect]
     Dosage: 75 MG, 2X/DAY
     Route: 048
     Dates: start: 201403, end: 201403
  2. LYRICA [Suspect]
     Dosage: 75 MG IN THE MORNING AND 150 MG AT NIGHT
     Route: 048
     Dates: start: 201403

REACTIONS (1)
  - Weight increased [Not Recovered/Not Resolved]
